FAERS Safety Report 8405389-4 (Version None)
Quarter: 2012Q2

REPORT INFORMATION
  Report Type: 
  Country: None (occurrence: None)
  Receive Date: 20120323
  Receipt Date: 20110503
  Transmission Date: 20120825
  Serious: Yes (Hospitalization)
  Sender: FDA-Public Use
  Company Number: 163-21880-11050284

PATIENT
  Age: 78 Year
  Sex: Male

DRUGS (8)
  1. LEXAPRO [Concomitant]
  2. KLORCON M-20(POTASSIUM CHLORIDE)(TABLETS) [Concomitant]
  3. DEXAMETHASONE(DEXAMETHASONE)(6 MILLIGRAM, TABLETS) [Concomitant]
  4. GABAPENTIN(GABAPENTIN)(100 MILLIGRAM, CAPSULES) [Concomitant]
  5. REVLIMID [Suspect]
     Indication: MULTIPLE MYELOMA
     Dosage: 10 MG, DAILY 1-21, OFF FOR 7, PO
     Route: 048
     Dates: start: 20110408
  6. SOTALOL(SOTALOL)(120 MILLIGRAM, TABLETS) [Concomitant]
  7. LASIX(FUROSEMIDE)(40 MILLIGRAM, TABLETS) [Concomitant]
  8. OMEPRAZOLE(OMEPRAZOLE)(40 MILLIGRAM, CAPSULES) [Concomitant]

REACTIONS (3)
  - CONDITION AGGRAVATED [None]
  - OEDEMA PERIPHERAL [None]
  - PYREXIA [None]
